FAERS Safety Report 25611762 (Version 1)
Quarter: 2025Q3

REPORT INFORMATION
  Report Type: Report from Study
  Country: US (occurrence: US)
  Receive Date: 20250728
  Receipt Date: 20250728
  Transmission Date: 20251021
  Serious: Yes (Other)
  Sender: ALEXION PHARMACEUTICALS
  Company Number: US-AstraZeneca-CH-00916163A

PATIENT
  Sex: Male

DRUGS (1)
  1. DAPAGLIFLOZIN\METFORMIN HYDROCHLORIDE [Suspect]
     Active Substance: DAPAGLIFLOZIN\METFORMIN HYDROCHLORIDE
     Route: 065

REACTIONS (7)
  - Eye disorder [Unknown]
  - Surgery [Unknown]
  - Vision blurred [Unknown]
  - Visual impairment [Unknown]
  - Blindness [Unknown]
  - Loss of personal independence in daily activities [Unknown]
  - Blood glucose abnormal [Unknown]
